FAERS Safety Report 16280319 (Version 4)
Quarter: 2019Q4

REPORT INFORMATION
  Report Type: Spontaneous
  Country: US (occurrence: US)
  Receive Date: 20190507
  Receipt Date: 20191128
  Transmission Date: 20200122
  Serious: No
  Sender: FDA-Public Use
  Company Number: US-BIOGEN-2019BI00732622

PATIENT
  Sex: Female

DRUGS (2)
  1. TYSABRI [Suspect]
     Active Substance: NATALIZUMAB
     Indication: MULTIPLE SCLEROSIS
     Dosage: INFUSED OVER 1 HOUR
     Route: 065
  2. TYSABRI [Suspect]
     Active Substance: NATALIZUMAB
     Route: 065
     Dates: start: 20190322

REACTIONS (14)
  - Limb discomfort [Not Recovered/Not Resolved]
  - Dysmenorrhoea [Unknown]
  - Memory impairment [Unknown]
  - Dermatillomania [Unknown]
  - Pain in extremity [Recovered/Resolved]
  - Depression [Unknown]
  - Anxiety [Unknown]
  - Skin discolouration [Unknown]
  - Neck pain [Unknown]
  - Urinary hesitation [Unknown]
  - Hypomenorrhoea [Unknown]
  - Menorrhagia [Unknown]
  - Back pain [Unknown]
  - Micturition urgency [Unknown]
